FAERS Safety Report 8190869-X (Version None)
Quarter: 2012Q1

REPORT INFORMATION
  Report Type: 
  Country: None (occurrence: None)
  Receive Date: 20120307
  Receipt Date: 20120301
  Transmission Date: 20120608
  Serious: Yes (Hospitalization, Disabling, Other)
  Sender: FDA-Public Use
  Company Number: US-MERCK-1104USA02662

PATIENT
  Age: 67 Year
  Sex: Female
  Weight: 82 kg

DRUGS (10)
  1. FOSAMAX [Suspect]
     Route: 048
     Dates: start: 20010410, end: 20061226
  2. FOSAMAX [Suspect]
     Indication: OSTEOPOROSIS
     Route: 048
     Dates: start: 19981231, end: 20010401
  3. ALENDRONATE SODIUM [Suspect]
     Indication: OSTEOPOROSIS
     Route: 048
     Dates: start: 20080624, end: 20090528
  4. CALCIUM (UNSPECIFIED) AND VITAMIN D (UNSPECIFIED) [Concomitant]
     Route: 048
     Dates: start: 19800101
  5. CORTICOSTEROIDS (UNSPECIFIED) [Concomitant]
     Route: 048
     Dates: start: 19910101, end: 20060101
  6. DILANTIN [Concomitant]
     Indication: EPILEPSY
     Route: 048
     Dates: start: 19970101
  7. HORMONES (UNSPECIFIED) [Concomitant]
     Route: 048
     Dates: start: 19970101, end: 20020101
  8. VITAMIN E [Concomitant]
     Route: 048
     Dates: start: 19800101
  9. MYSOLINE [Concomitant]
     Indication: EPILEPSY
     Route: 048
     Dates: start: 19970101, end: 20030101
  10. ASCORBIC ACID [Concomitant]
     Route: 048
     Dates: start: 19800101

REACTIONS (38)
  - ARTHROPATHY [None]
  - SUBCUTANEOUS ABSCESS [None]
  - LARYNGITIS [None]
  - FEMUR FRACTURE [None]
  - HYPOGLYCAEMIA [None]
  - LOW TURNOVER OSTEOPATHY [None]
  - FOOT FRACTURE [None]
  - RIB FRACTURE [None]
  - PRESSURE OF SPEECH [None]
  - PAIN IN EXTREMITY [None]
  - NEUROPATHY PERIPHERAL [None]
  - MUSCLE SPASMS [None]
  - ASTHENIA [None]
  - ANKLE FRACTURE [None]
  - OSTEOPOROSIS [None]
  - CHEST PAIN [None]
  - HYPERLIPIDAEMIA [None]
  - TENSION HEADACHE [None]
  - MUSCLE RUPTURE [None]
  - GASTROENTERITIS [None]
  - CONTUSION [None]
  - HIATUS HERNIA [None]
  - LIMB DEFORMITY [None]
  - STAPHYLOCOCCAL INFECTION [None]
  - STRESS FRACTURE [None]
  - RADIUS FRACTURE [None]
  - MYALGIA [None]
  - LOWER LIMB FRACTURE [None]
  - FALL [None]
  - MUSCLE STRAIN [None]
  - BRONCHITIS [None]
  - TENDONITIS [None]
  - ULNA FRACTURE [None]
  - URINARY TRACT INFECTION [None]
  - BONE DISORDER [None]
  - FRACTURE NONUNION [None]
  - OEDEMA PERIPHERAL [None]
  - IRRITABLE BOWEL SYNDROME [None]
